FAERS Safety Report 11512615 (Version 1)
Quarter: 2015Q3

REPORT INFORMATION
  Report Type: Spontaneous
  Country: US (occurrence: None)
  Receive Date: 20150915
  Receipt Date: 20150915
  Transmission Date: 20151125
  Serious: No
  Sender: FDA-Public Use
  Company Number: None

PATIENT
  Age: 78 Year
  Sex: Female
  Weight: 74.84 kg

DRUGS (17)
  1. CALCIUM [Concomitant]
     Active Substance: CALCIUM
  2. CLARITHROMYCUN 500 MG PILL [Suspect]
     Active Substance: CLARITHROMYCIN
     Indication: PYREXIA
     Dosage: 500 MG ?40 PILS?1AM + 1PM?MOUTH
     Route: 048
     Dates: start: 201505
  3. VITAMIN C [Concomitant]
     Active Substance: ASCORBIC ACID
  4. POT-CHOLORIDE [Concomitant]
  5. METOPROLOL ER [Concomitant]
     Active Substance: METOPROLOL SUCCINATE
  6. TAMARLOL [Concomitant]
  7. HALOPERIDOL. [Concomitant]
     Active Substance: HALOPERIDOL
  8. VITAMIN E [Concomitant]
     Active Substance: .ALPHA.-TOCOPHEROL
  9. LOSARTAN. [Concomitant]
     Active Substance: LOSARTAN
  10. PROGLITOZINE [Concomitant]
  11. METFORMIN [Concomitant]
     Active Substance: METFORMIN HYDROCHLORIDE
  12. CLARITHROMYCUN 500 MG PILL [Suspect]
     Active Substance: CLARITHROMYCIN
     Indication: SINUS DISORDER
     Dosage: 500 MG ?40 PILS?1AM + 1PM?MOUTH
     Route: 048
     Dates: start: 201505
  13. 1-A-DAY [Concomitant]
  14. ATOVASTIN [Concomitant]
  15. ASPIRIN. [Concomitant]
     Active Substance: ASPIRIN
  16. CLARITHROMYCUN 500 MG PILL [Suspect]
     Active Substance: CLARITHROMYCIN
     Indication: OROPHARYNGEAL PAIN
     Dosage: 500 MG ?40 PILS?1AM + 1PM?MOUTH
     Route: 048
     Dates: start: 201505
  17. LORATADINE. [Concomitant]
     Active Substance: LORATADINE

REACTIONS (2)
  - Throat irritation [None]
  - Dysgeusia [None]

NARRATIVE: CASE EVENT DATE: 201504
